FAERS Safety Report 19860837 (Version 3)
Quarter: 2022Q3

REPORT INFORMATION
  Report Type: Spontaneous
  Country: JP (occurrence: JP)
  Receive Date: 20210921
  Receipt Date: 20220714
  Transmission Date: 20221026
  Serious: Yes (Hospitalization, Disabling, Other)
  Sender: FDA-Public Use
  Company Number: JP-GLAXOSMITHKLINE-JP2021JPN194487

PATIENT

DRUGS (43)
  1. VALTREX [Suspect]
     Active Substance: VALACYCLOVIR HYDROCHLORIDE
     Indication: Herpes simplex
     Dosage: 500 MG, BID
     Route: 048
     Dates: start: 20201020
  2. ZOVIRAX [Suspect]
     Active Substance: ACYCLOVIR
     Indication: Prophylaxis
     Dosage: 200 MG, QD
     Route: 048
     Dates: start: 20200101, end: 20201224
  3. VALACYCLOVIR HYDROCHLORIDE [Suspect]
     Active Substance: VALACYCLOVIR HYDROCHLORIDE
     Indication: Herpes zoster
     Dosage: 1000 MG, TID
     Route: 048
     Dates: start: 20201225, end: 20201225
  4. FLUCONAZOLE [Suspect]
     Active Substance: FLUCONAZOLE
     Indication: Prophylaxis
     Dosage: 200 MG, QD
     Route: 048
     Dates: start: 20200910
  5. FLUCONAZOLE [Suspect]
     Active Substance: FLUCONAZOLE
     Indication: Liver disorder
     Dosage: 100 MG, BID
     Route: 048
     Dates: start: 20200914
  6. METRONIDAZOLE [Suspect]
     Active Substance: METRONIDAZOLE
     Indication: Cord colitis syndrome
     Dosage: 250 MG, QID
     Route: 048
     Dates: start: 20201224, end: 20201225
  7. CEFCAPENE PIVOXIL HYDROCHLORIDE [Suspect]
     Active Substance: CEFCAPENE PIVOXIL HYDROCHLORIDE
     Indication: Urethritis
     Dosage: 100 MG, TID
     Route: 048
     Dates: start: 20201014, end: 20201020
  8. FEBUXOSTAT [Suspect]
     Active Substance: FEBUXOSTAT
     Indication: Hyperuricaemia
     Dosage: UNK
  9. FEBUXOSTAT [Suspect]
     Active Substance: FEBUXOSTAT
     Dosage: 10 MG, QD
     Route: 048
     Dates: start: 20200904, end: 20200909
  10. FEBUXOSTAT [Suspect]
     Active Substance: FEBUXOSTAT
     Dosage: 20 MG, QD
     Route: 048
     Dates: start: 20200910, end: 20201024
  11. RENIVACE TABLETS [Concomitant]
     Dosage: UNK
  12. LANSOPRAZOLE-OD TABLETS [Concomitant]
     Dosage: UNK
  13. SULFAMETHOXAZOLE\TRIMETHOPRIM [Concomitant]
     Active Substance: SULFAMETHOXAZOLE\TRIMETHOPRIM
     Dosage: UNK
  14. PREDONINE [Concomitant]
     Active Substance: PREDNISOLONE
     Indication: Graft versus host disease
     Dosage: 5 MG, BID
     Dates: end: 20200909
  15. PREDONINE [Concomitant]
     Active Substance: PREDNISOLONE
     Dosage: 7.5 MG
     Dates: start: 20200910, end: 20200916
  16. PREDONINE [Concomitant]
     Active Substance: PREDNISOLONE
     Dosage: 5 MG
     Dates: start: 20200917, end: 20201008
  17. PREDONINE [Concomitant]
     Active Substance: PREDNISOLONE
     Dosage: 2.5 MG
     Dates: start: 20201009, end: 20201025
  18. NEORAL CAPSULES [Concomitant]
     Indication: Cytomegalovirus infection
     Dosage: UNK
  19. NEORAL CAPSULES [Concomitant]
     Indication: Graft versus host disease in skin
     Dosage: 25 MG, QD
     Dates: start: 20200904, end: 20201008
  20. NEORAL CAPSULES [Concomitant]
     Indication: Graft versus host disease in gastrointestinal tract
     Dosage: 50 MG
     Dates: start: 20201009, end: 20201025
  21. NEORAL CAPSULES [Concomitant]
     Indication: Diarrhoea
     Dosage: 25 MG
     Dates: start: 20201124, end: 20201125
  22. NEORAL CAPSULES [Concomitant]
     Dosage: 50 MG
     Dates: start: 20201126
  23. NEORAL CAPSULES [Concomitant]
     Dosage: 25 MG
  24. HYALURONATE NA OPHTHALMIC SOLUTION 0.1% [Concomitant]
     Indication: Adenoviral conjunctivitis
     Dosage: UNK
     Dates: start: 20201020
  25. BROMFENAC NA OPHTHALMIC SOLUTION [Concomitant]
     Indication: Adenoviral conjunctivitis
     Dosage: UNK
     Dates: start: 20201020
  26. LEVOFLOXACIN [Concomitant]
     Active Substance: LEVOFLOXACIN
     Indication: Adenoviral conjunctivitis
     Dosage: UNK
     Dates: start: 20201020
  27. VICCLOX INTRAVENOUS [Concomitant]
     Dosage: 500 MG, TID
     Dates: start: 20201025, end: 20201110
  28. VICCLOX INTRAVENOUS [Concomitant]
     Dosage: 500 MG, TID
     Dates: start: 20201218, end: 20201224
  29. ZOSYN INTRAVENOUS [Concomitant]
     Dosage: UNK
     Dates: start: 20201025, end: 20201027
  30. MEROPEN DRIP INFUSION [Concomitant]
     Indication: Inflammation
     Dosage: 0.5 G, BID
     Dates: start: 20201027, end: 20201109
  31. ZYVOX INJECTION [Concomitant]
     Dosage: 600 MG, BID
     Dates: start: 20201027, end: 20201102
  32. MICAFUNGIN SODIUM [Concomitant]
     Active Substance: MICAFUNGIN SODIUM
     Indication: Inflammation
     Dosage: 75 MG, QD
     Dates: start: 20201029, end: 20201106
  33. FLUMETHOLON OPHTHALMIC SUSPENSION [Concomitant]
     Dosage: UNK
     Dates: start: 20201030
  34. ZOVIRAX OPHTHALMIC OINTMENT [Concomitant]
     Dosage: UNK
  35. BUDESONIDE [Concomitant]
     Active Substance: BUDESONIDE
     Dosage: 9 MG, QD
     Dates: start: 20201211, end: 20201218
  36. SOLU-MEDROL [Concomitant]
     Active Substance: METHYLPREDNISOLONE SODIUM SUCCINATE
     Dosage: 62.5 MG, QD
     Dates: start: 20201225, end: 20201225
  37. SOLU-MEDROL [Concomitant]
     Active Substance: METHYLPREDNISOLONE SODIUM SUCCINATE
     Dosage: TID, 30 MG PER DOSE TWICE DAILY PLUS 50 MG PER DOSE ONCE DAILY
     Dates: start: 20201226, end: 20201229
  38. LEVOFLOXACIN [Concomitant]
     Active Substance: LEVOFLOXACIN
     Indication: Gastroenteritis
     Dosage: 500 MG, QD
     Dates: start: 20200828, end: 20200904
  39. LEVOFLOXACIN [Concomitant]
     Active Substance: LEVOFLOXACIN
     Indication: Graft versus host disease in gastrointestinal tract
     Dosage: 500 MG, QD
     Dates: start: 20201006
  40. LEVOFLOXACIN [Concomitant]
     Active Substance: LEVOFLOXACIN
     Indication: Urethral pain
  41. VFEND TABLETS [Concomitant]
     Dosage: 200 MG, BID
     Dates: end: 20200913
  42. RINDERON OPHTHALMIC SOLUTION (BETAMETHASONE SODIUM PHOSPHATE) [Concomitant]
     Indication: Adenoviral conjunctivitis
     Dosage: UNK
     Dates: start: 20201023
  43. PENTAZOCINE [Concomitant]
     Active Substance: PENTAZOCINE
     Indication: Analgesic therapy
     Dosage: UNK

REACTIONS (40)
  - Stevens-Johnson syndrome [Recovered/Resolved with Sequelae]
  - Graft versus host disease [Unknown]
  - Graft versus host disease in gastrointestinal tract [Unknown]
  - Graft versus host disease in skin [Unknown]
  - Chronic graft versus host disease [Unknown]
  - Cytomegalovirus infection [Unknown]
  - Diarrhoea [Unknown]
  - Hypokalaemia [Unknown]
  - Herpes zoster [Unknown]
  - Cord colitis syndrome [Unknown]
  - Ulcerative keratitis [Unknown]
  - Corneal perforation [Unknown]
  - Pseudomonas infection [Unknown]
  - Pathogen resistance [Unknown]
  - Toxic epidermal necrolysis [Unknown]
  - Gastroenteritis [Unknown]
  - Liver disorder [Unknown]
  - Hyperuricaemia [Unknown]
  - Urethral pain [Unknown]
  - Urethritis [Unknown]
  - Erythema [Unknown]
  - Conjunctival hyperaemia [Unknown]
  - Lacrimation increased [Unknown]
  - Eye discharge [Unknown]
  - Genital herpes [Unknown]
  - Adenoviral conjunctivitis [Unknown]
  - Blister [Unknown]
  - Oral mucosal blistering [Unknown]
  - Lip blister [Unknown]
  - Oropharyngeal pain [Unknown]
  - Oral mucosal exfoliation [Unknown]
  - Mucosal disorder [Unknown]
  - Inflammation [Unknown]
  - Skin disorder [Unknown]
  - Dry eye [Unknown]
  - Corneal disorder [Unknown]
  - Pruritus [Unknown]
  - Eye pain [Unknown]
  - Incorrect product administration duration [Unknown]
  - Product use in unapproved indication [Unknown]

NARRATIVE: CASE EVENT DATE: 20200904
